FAERS Safety Report 6823799-3 (Version None)
Quarter: 2010Q3

REPORT INFORMATION
  Report Type: 
  Country: None (occurrence: None)
  Receive Date: 20100708
  Receipt Date: 20070124
  Transmission Date: 20110219
  Serious: No
  Sender: FDA-Public Use
  Company Number: US-PFIZER INC-2006110081

PATIENT
  Sex: Female
  Weight: 58.06 kg

DRUGS (5)
  1. CHANTIX [Suspect]
     Indication: SMOKING CESSATION THERAPY
     Dates: start: 20060829
  2. LEXAPRO [Concomitant]
  3. SOY ISOFLAVONES [Concomitant]
     Indication: MENOPAUSE
  4. NORCO [Concomitant]
  5. VALIUM [Concomitant]

REACTIONS (1)
  - GASTRIC DISORDER [None]
